FAERS Safety Report 26121626 (Version 1)
Quarter: 2025Q4

REPORT INFORMATION
  Report Type: Spontaneous
  Country: AU (occurrence: AU)
  Receive Date: 20251204
  Receipt Date: 20251204
  Transmission Date: 20260118
  Serious: Yes (Other)
  Sender: BEIGENE
  Company Number: AU-BEONEMEDICINES-BGN-2025-021625

PATIENT
  Sex: Male

DRUGS (3)
  1. TEVIMBRA [Suspect]
     Active Substance: TISLELIZUMAB-JSGR
     Indication: Oesophageal carcinoma
  2. TEVIMBRA [Suspect]
     Active Substance: TISLELIZUMAB-JSGR
  3. TRASTUZUMAB [Concomitant]
     Active Substance: TRASTUZUMAB
     Indication: Oesophageal carcinoma

REACTIONS (2)
  - Drug reaction with eosinophilia and systemic symptoms [Unknown]
  - Liver function test abnormal [Unknown]
